FAERS Safety Report 6123128-7 (Version None)
Quarter: 2009Q1

REPORT INFORMATION
  Report Type: 
  Country: None (occurrence: None)
  Receive Date: 20090318
  Receipt Date: 20090316
  Transmission Date: 20090719
  Serious: Yes (Death, Hospitalization)
  Sender: FDA-Public Use
  Company Number: US-ELI_LILLY_AND_COMPANY-US200903003893

PATIENT
  Age: 55 Year
  Sex: Male

DRUGS (2)
  1. GEMZAR [Suspect]
     Indication: BREAST CANCER
     Dosage: 2280 MG, UNK
     Dates: start: 20090311
  2. HERCEPTIN [Concomitant]
     Indication: BREAST CANCER

REACTIONS (3)
  - BLOOD CREATININE INCREASED [None]
  - DEATH [None]
  - HEPATIC ENZYME ABNORMAL [None]
